FAERS Safety Report 14470421 (Version 1)
Quarter: 2018Q1

REPORT INFORMATION
  Report Type: Spontaneous
  Country: FR (occurrence: FR)
  Receive Date: 20180131
  Receipt Date: 20180131
  Transmission Date: 20180509
  Serious: Yes (Hospitalization)
  Sender: FDA-Public Use
  Company Number: FR-ABBVIE-12P-056-0994768-00

PATIENT
  Age: 10 Year
  Sex: Female

DRUGS (8)
  1. MICROPAKINE L.P. [Suspect]
     Active Substance: VALPROATE SODIUM
     Route: 048
  2. OSPOLOT [Suspect]
     Active Substance: SULTHIAME
     Route: 048
  3. MICROPAKINE L.P. [Suspect]
     Active Substance: VALPROATE SODIUM
     Indication: PARTIAL SEIZURES
     Route: 048
     Dates: start: 200908
  4. MICROPAKINE L.P. [Suspect]
     Active Substance: VALPROATE SODIUM
     Route: 048
     Dates: start: 20120427
  5. URBANYL [Concomitant]
     Active Substance: CLOBAZAM
     Indication: PRODUCT USED FOR UNKNOWN INDICATION
  6. MICROPAKINE L.P. [Suspect]
     Active Substance: VALPROATE SODIUM
     Route: 048
  7. OSPOLOT [Suspect]
     Active Substance: SULTHIAME
     Route: 048
     Dates: start: 20120427
  8. OSPOLOT [Suspect]
     Active Substance: SULTHIAME
     Indication: PARTIAL SEIZURES
     Route: 048
     Dates: start: 201204, end: 201204

REACTIONS (4)
  - Oppositional defiant disorder [Recovered/Resolved]
  - Aggression [Recovered/Resolved]
  - Aphasia [Recovered/Resolved]
  - Speech disorder [Recovered/Resolved]

NARRATIVE: CASE EVENT DATE: 20120608
